FAERS Safety Report 4893432-9 (Version None)
Quarter: 2006Q1

REPORT INFORMATION
  Report Type: 
  Country: None (occurrence: None)
  Receive Date: 20060125
  Receipt Date: 20060125
  Transmission Date: 20060701
  Serious: Yes (Hospitalization, Other)
  Sender: FDA-Public Use
  Company Number: None

PATIENT
  Sex: Female
  Weight: 53.6 kg

DRUGS (9)
  1. ABRAXANE [Suspect]
     Indication: BREAST CANCER
     Dosage: SEE IMAGE
     Route: 042
     Dates: start: 20051224
  2. GEMZAR [Suspect]
     Dosage: SEE IMAGE
     Route: 042
     Dates: start: 20051221, end: 20051221
  3. ALBUTEROL [Concomitant]
  4. CLINDAMYCIN HCL [Concomitant]
  5. LASIX [Concomitant]
  6. LOVENOX [Concomitant]
  7. PROVENTIL INH [Concomitant]
  8. ROBITUSSIN [Concomitant]
  9. ZOSYN [Concomitant]

REACTIONS (3)
  - ASTHENIA [None]
  - FATIGUE [None]
  - PNEUMONIA [None]
